FAERS Safety Report 9507684 (Version 5)
Quarter: 2015Q2

REPORT INFORMATION
  Report Type: Spontaneous
  Country: US (occurrence: US)
  Receive Date: 20130909
  Receipt Date: 20150614
  Transmission Date: 20150821
  Serious: Yes (Hospitalization, Disabling, Other)
  Sender: FDA-Public Use
  Company Number: US-SANOFI-AVENTIS-2013SA088397

PATIENT
  Age: 63 Year
  Sex: Female

DRUGS (6)
  1. PLAVIX [Suspect]
     Active Substance: CLOPIDOGREL BISULFATE
     Indication: CEREBROVASCULAR ACCIDENT
     Route: 048
     Dates: start: 20101025
  2. PLAVIX [Suspect]
     Active Substance: CLOPIDOGREL BISULFATE
     Indication: CEREBROVASCULAR ACCIDENT
     Route: 065
     Dates: end: 20110422
  3. PLAVIX [Suspect]
     Active Substance: CLOPIDOGREL BISULFATE
     Indication: ANEURYSM
     Route: 048
     Dates: start: 20101025
  4. PLAVIX [Suspect]
     Active Substance: CLOPIDOGREL BISULFATE
     Indication: TRANSIENT ISCHAEMIC ATTACK
     Route: 065
     Dates: end: 20110422
  5. PLAVIX [Suspect]
     Active Substance: CLOPIDOGREL BISULFATE
     Indication: ANEURYSM
     Route: 065
     Dates: end: 20110422
  6. PLAVIX [Suspect]
     Active Substance: CLOPIDOGREL BISULFATE
     Indication: TRANSIENT ISCHAEMIC ATTACK
     Route: 048
     Dates: start: 20101025

REACTIONS (11)
  - Injury [Unknown]
  - Psychological trauma [Not Recovered/Not Resolved]
  - Economic problem [Not Recovered/Not Resolved]
  - Drug hypersensitivity [Unknown]
  - Anhedonia [Not Recovered/Not Resolved]
  - Pain [Unknown]
  - Physical disability [Unknown]
  - Loss of employment [Not Recovered/Not Resolved]
  - Tension [Not Recovered/Not Resolved]
  - Social problem [Not Recovered/Not Resolved]
  - Cerebral haemorrhage [Unknown]

NARRATIVE: CASE EVENT DATE: 20101028
